FAERS Safety Report 9616887 (Version 2)
Quarter: 2013Q4

REPORT INFORMATION
  Report Type: Report from Study
  Country: BR (occurrence: BR)
  Receive Date: 20131011
  Receipt Date: 20131011
  Transmission Date: 20140711
  Serious: Yes (Other)
  Sender: FDA-Public Use
  Company Number: PHHY2013BR101500

PATIENT
  Sex: Female

DRUGS (3)
  1. DIOVAN HCT [Suspect]
     Indication: HYPERTENSION
     Dosage: 1 DF (160/12.5MG) DAILY
  2. METFORMIN [Concomitant]
     Indication: DIABETES MELLITUS
     Dosage: 2550 MG, DAILY
     Route: 048
  3. HUMAN INSULINK [Concomitant]
     Indication: DIABETES MELLITUS
     Dosage: 2 APLICATIONS, DAILY
     Route: 058

REACTIONS (3)
  - Breast cancer [Unknown]
  - Endometrial cancer [Unknown]
  - Memory impairment [Unknown]
